FAERS Safety Report 11434214 (Version 2)
Quarter: 2016Q1

REPORT INFORMATION
  Report Type: Report from Study
  Country: US (occurrence: US)
  Receive Date: 20150831
  Receipt Date: 20160303
  Transmission Date: 20160525
  Serious: Yes (Life-Threatening, Hospitalization)
  Sender: FDA-Public Use
  Company Number: US-EISAI MEDICAL RESEARCH-EC-2015-009851

PATIENT
  Age: 69 Year
  Sex: Female
  Weight: 82.92 kg

DRUGS (21)
  1. ERIBULIN [Suspect]
     Active Substance: ERIBULIN
     Indication: BREAST CANCER METASTATIC
     Route: 041
     Dates: start: 20150714, end: 20150813
  2. HYCET [Concomitant]
     Active Substance: ACETAMINOPHEN\HYDROCODONE BITARTRATE
  3. TRAMADOL. [Concomitant]
     Active Substance: TRAMADOL
  4. TYLENOL [Concomitant]
     Active Substance: ACETAMINOPHEN
  5. FENTANYL. [Concomitant]
     Active Substance: FENTANYL
  6. POTASSIUM CHLORIDE. [Concomitant]
     Active Substance: POTASSIUM CHLORIDE
  7. KEFLEX [Concomitant]
     Active Substance: CEPHALEXIN
  8. COLD EASE [Concomitant]
  9. PROMETHAZINE [Concomitant]
     Active Substance: PROMETHAZINE\PROMETHAZINE HYDROCHLORIDE
  10. ALLEGRA [Concomitant]
     Active Substance: FEXOFENADINE HYDROCHLORIDE
  11. LISINOPRIL. [Concomitant]
     Active Substance: LISINOPRIL
  12. ATIVAN [Concomitant]
     Active Substance: LORAZEPAM
  13. CORICIDIN [Concomitant]
     Active Substance: ACETAMINOPHEN\CHLORPHENIRAMINE MALEATE
  14. DEXAMETHASONE. [Concomitant]
     Active Substance: DEXAMETHASONE
  15. HYDROCHLOROTHIAZIDE. [Concomitant]
     Active Substance: HYDROCHLOROTHIAZIDE
  16. MIRACLE MOUTHWASH [Concomitant]
  17. PEPCID AC [Concomitant]
     Active Substance: FAMOTIDINE
  18. PROCHLORPERAZINE. [Concomitant]
     Active Substance: PROCHLORPERAZINE
  19. CELEXA [Concomitant]
     Active Substance: CITALOPRAM HYDROBROMIDE
  20. LACTULOSE. [Concomitant]
     Active Substance: LACTULOSE
  21. ONDANSETRON [Concomitant]
     Active Substance: ONDANSETRON

REACTIONS (2)
  - Sepsis [Recovered/Resolved]
  - Hypovolaemia [Not Recovered/Not Resolved]

NARRATIVE: CASE EVENT DATE: 20150824
